FAERS Safety Report 13973018 (Version 1)
Quarter: 2017Q3

REPORT INFORMATION
  Report Type: Spontaneous
  Country: ES (occurrence: ES)
  Receive Date: 20170914
  Receipt Date: 20170914
  Transmission Date: 20171128
  Serious: Yes (Hospitalization)
  Sender: FDA-Public Use
  Company Number: ES-PFIZER INC-2656562

PATIENT
  Age: 41 Year
  Sex: Female

DRUGS (5)
  1. ESLICARBAZEPINE [Suspect]
     Active Substance: ESLICARBAZEPINE
     Indication: SEIZURE
     Dosage: 400 MG, DAILY (FREQ: 1 DAY; INTERVAL: 1)
  2. LACOSAMIDE. [Concomitant]
     Active Substance: LACOSAMIDE
     Indication: SEIZURE
     Dosage: 600 MG,  FREQ: 1 DAY ; INTERVAL: 1
  3. LEVETIRACETAM. [Concomitant]
     Active Substance: LEVETIRACETAM
     Indication: SEIZURE
     Dosage: 4000 MG,  FREQ: 1 DAY; INTERVAL:
  4. ESLICARBAZEPINE [Suspect]
     Active Substance: ESLICARBAZEPINE
     Dosage: 800 MG, DAILY, (FREQ: 1 DAY; INTERVAL: 1)
  5. MEROPENEM. [Suspect]
     Active Substance: MEROPENEM
     Indication: MENINGITIS
     Dosage: UNK
     Route: 042

REACTIONS (2)
  - Therapeutic product cross-reactivity [Recovered/Resolved]
  - Erythema multiforme [Recovered/Resolved]
